FAERS Safety Report 14996833 (Version 1)
Quarter: 2018Q2

REPORT INFORMATION
  Report Type: Spontaneous
  Country: US (occurrence: US)
  Receive Date: 20180611
  Receipt Date: 20180611
  Transmission Date: 20180711
  Serious: Yes (Other)
  Sender: FDA-Public Use
  Company Number: US-PFIZER INC-2018232817

PATIENT

DRUGS (1)
  1. PALBOCICLIB [Suspect]
     Active Substance: PALBOCICLIB
     Indication: CHRONIC KIDNEY DISEASE
     Dosage: UNK

REACTIONS (2)
  - Condition aggravated [Unknown]
  - Chronic kidney disease [Unknown]
